FAERS Safety Report 20593306 (Version 1)
Quarter: 2022Q1

REPORT INFORMATION
  Report Type: Spontaneous
  Country: US (occurrence: None)
  Receive Date: 20220315
  Receipt Date: 20220315
  Transmission Date: 20220423
  Serious: No
  Sender: FDA-Public Use
  Company Number: US-ROCHE-2960255

PATIENT
  Age: 37 Year
  Weight: 74 kg

DRUGS (1)
  1. XOLAIR [Suspect]
     Active Substance: OMALIZUMAB
     Indication: Product used for unknown indication
     Dosage: TWO INJECTIONS WERE GIVEN?ON THE SAME DAY, A TOTAL OF 300ML.
     Route: 065

REACTIONS (4)
  - Rash [Unknown]
  - Blood immunoglobulin E increased [Unknown]
  - Asthma [Unknown]
  - Nasal discharge discolouration [Unknown]
